FAERS Safety Report 9008491 (Version 2)
Quarter: 2013Q2

REPORT INFORMATION
  Report Type: Report from Study
  Country: FR (occurrence: FR)
  Receive Date: 20130111
  Receipt Date: 20130626
  Transmission Date: 20140414
  Serious: Yes (Death, Hospitalization, Other)
  Sender: FDA-Public Use
  Company Number: FR-PFIZER INC-2013012399

PATIENT
  Age: 45 Year
  Sex: Male
  Weight: 72 kg

DRUGS (1)
  1. CRIZOTINIB [Suspect]
     Indication: LUNG ADENOCARCINOMA METASTATIC
     Dosage: 250 MG, 2X/DAY
     Dates: start: 20120619, end: 20120925

REACTIONS (12)
  - Oedema [Not Recovered/Not Resolved]
  - Liver function test abnormal [Not Recovered/Not Resolved]
  - Disease progression [Fatal]
  - Lung adenocarcinoma metastatic [Fatal]
  - Pain [Unknown]
  - Pyrexia [Unknown]
  - General physical health deterioration [Unknown]
  - Abdominal pain [Unknown]
  - Jaundice [Unknown]
  - Hepatic encephalopathy [Unknown]
  - Ascites [Unknown]
  - Visual impairment [Unknown]
